FAERS Safety Report 9920069 (Version 1)
Quarter: 2014Q1

REPORT INFORMATION
  Report Type: Spontaneous
  Country: FR (occurrence: FR)
  Receive Date: 20140224
  Receipt Date: 20140224
  Transmission Date: 20141002
  Serious: Yes (Death)
  Sender: FDA-Public Use
  Company Number: PHHY2014FR022249

PATIENT
  Age: 22 Year
  Sex: Female

DRUGS (5)
  1. CARBAMAZEPINE [Suspect]
     Indication: LYMPHOPROLIFERATIVE DISORDER
  2. SULFAMETHOXAZOLE+TRIMETHOPRIM [Suspect]
     Indication: LYMPHOPROLIFERATIVE DISORDER
  3. PREDNISONE [Suspect]
     Indication: LYMPHOPROLIFERATIVE DISORDER
  4. VALACICLOVIR [Suspect]
     Indication: LYMPHOPROLIFERATIVE DISORDER
  5. SIROLIMUS [Suspect]
     Indication: LYMPHOPROLIFERATIVE DISORDER

REACTIONS (2)
  - Drug-induced liver injury [Fatal]
  - Hepatic necrosis [Fatal]
